FAERS Safety Report 5761940-4 (Version None)
Quarter: 2008Q2

REPORT INFORMATION
  Report Type: 
  Country: None (occurrence: None)
  Receive Date: 20080603
  Receipt Date: 20080520
  Transmission Date: 20081010
  Serious: No
  Sender: FDA-Public Use
  Company Number: US023591

PATIENT
  Sex: Female

DRUGS (2)
  1. FENTORA [Suspect]
     Indication: CANCER PAIN
     Dosage: BUCCAL
     Route: 002
  2. FENTANYL TRANSDERMAL SYSTEM [Concomitant]

REACTIONS (1)
  - MEDICATION ERROR [None]
